FAERS Safety Report 5425617-7 (Version None)
Quarter: 2007Q3

REPORT INFORMATION
  Report Type: 
  Country: None (occurrence: None)
  Receive Date: 20070824
  Receipt Date: 20070813
  Transmission Date: 20080115
  Serious: Yes (Other)
  Sender: FDA-Public Use
  Company Number: US-PFIZER INC-2007067502

PATIENT
  Sex: Female
  Weight: 91.6 kg

DRUGS (9)
  1. LYRICA [Suspect]
     Indication: FIBROMYALGIA
  2. NEURONTIN [Suspect]
     Indication: FIBROMYALGIA
  3. MORPHINE [Suspect]
  4. ELAVIL [Concomitant]
  5. VALIUM [Concomitant]
  6. VICODIN [Concomitant]
  7. PRILOSEC [Concomitant]
  8. LISINOPRIL [Concomitant]
  9. ALLEGRA D 24 HOUR [Concomitant]

REACTIONS (7)
  - APNOEA [None]
  - CEREBROVASCULAR ACCIDENT [None]
  - FIBROMYALGIA [None]
  - MEMORY IMPAIRMENT [None]
  - PAIN [None]
  - RESPIRATORY TRACT IRRITATION [None]
  - THINKING ABNORMAL [None]
